FAERS Safety Report 8401076-7 (Version None)
Quarter: 2012Q2

REPORT INFORMATION
  Report Type: 
  Country: None (occurrence: None)
  Receive Date: 20120525
  Receipt Date: 20120510
  Transmission Date: 20120825
  Serious: Yes (Hospitalization, Other)
  Sender: FDA-Public Use
  Company Number: 2012P1018211

PATIENT
  Age: 45 Year
  Sex: Male
  Weight: 72.8477 kg

DRUGS (8)
  1. INSULIN [Concomitant]
  2. CEFTAZIDIME [Suspect]
     Dosage: 1 GM, BID, IV
     Route: 042
     Dates: start: 20120416, end: 20120502
  3. ENALAPRIL MALEATE [Concomitant]
  4. LIPIDEX [Concomitant]
  5. HYDROCHLORIDE [Concomitant]
  6. BEPRIDIL [Concomitant]
  7. FUROSEMIDE [Concomitant]
  8. SPIRONOLACTONE [Concomitant]

REACTIONS (4)
  - WOUND INFECTION [None]
  - HAEMORRHAGE [None]
  - MEDIASTINITIS [None]
  - CARDIAC TAMPONADE [None]
